FAERS Safety Report 25191648 (Version 1)
Quarter: 2025Q2

REPORT INFORMATION
  Report Type: Spontaneous
  Country: FR (occurrence: FR)
  Receive Date: 20250414
  Receipt Date: 20250414
  Transmission Date: 20250716
  Serious: Yes (Hospitalization)
  Sender: MYLAN
  Company Number: None

PATIENT
  Age: 63 Year
  Sex: Female
  Weight: 125 kg

DRUGS (32)
  1. VENLAFAXINE [Interacting]
     Active Substance: VENLAFAXINE HYDROCHLORIDE
     Indication: Depression
     Dosage: 150 MILLIGRAM, QD
  2. VENLAFAXINE [Interacting]
     Active Substance: VENLAFAXINE HYDROCHLORIDE
     Dosage: 150 MILLIGRAM, QD
     Route: 048
  3. VENLAFAXINE [Interacting]
     Active Substance: VENLAFAXINE HYDROCHLORIDE
     Dosage: 150 MILLIGRAM, QD
     Route: 048
  4. VENLAFAXINE [Interacting]
     Active Substance: VENLAFAXINE HYDROCHLORIDE
     Dosage: 150 MILLIGRAM, QD
  5. IRBESARTAN [Interacting]
     Active Substance: IRBESARTAN
     Indication: Hypertension
     Dosage: 37.5 MILLIGRAM, QD
  6. IRBESARTAN [Interacting]
     Active Substance: IRBESARTAN
     Dosage: 37.5 MILLIGRAM, QD
     Route: 048
  7. IRBESARTAN [Interacting]
     Active Substance: IRBESARTAN
     Dosage: 37.5 MILLIGRAM, QD
     Route: 048
  8. IRBESARTAN [Interacting]
     Active Substance: IRBESARTAN
     Dosage: 37.5 MILLIGRAM, QD
  9. CLOZAPINE [Suspect]
     Active Substance: CLOZAPINE
     Indication: Product used for unknown indication
     Dates: start: 20241223, end: 20241223
  10. CLOZAPINE [Suspect]
     Active Substance: CLOZAPINE
     Route: 048
     Dates: start: 20241223, end: 20241223
  11. CLOZAPINE [Suspect]
     Active Substance: CLOZAPINE
     Route: 048
     Dates: start: 20241223, end: 20241223
  12. CLOZAPINE [Suspect]
     Active Substance: CLOZAPINE
     Dates: start: 20241223, end: 20241223
  13. LOXAPINE [Suspect]
     Active Substance: LOXAPINE
     Indication: Product used for unknown indication
     Dates: start: 20241223, end: 20241223
  14. LOXAPINE [Suspect]
     Active Substance: LOXAPINE
     Route: 048
     Dates: start: 20241223, end: 20241223
  15. LOXAPINE [Suspect]
     Active Substance: LOXAPINE
     Route: 048
     Dates: start: 20241223, end: 20241223
  16. LOXAPINE [Suspect]
     Active Substance: LOXAPINE
     Dates: start: 20241223, end: 20241223
  17. MIRTAZAPINE [Suspect]
     Active Substance: MIRTAZAPINE
     Indication: Product used for unknown indication
     Dates: start: 20241223, end: 20241223
  18. MIRTAZAPINE [Suspect]
     Active Substance: MIRTAZAPINE
     Route: 048
     Dates: start: 20241223, end: 20241223
  19. MIRTAZAPINE [Suspect]
     Active Substance: MIRTAZAPINE
     Route: 048
     Dates: start: 20241223, end: 20241223
  20. MIRTAZAPINE [Suspect]
     Active Substance: MIRTAZAPINE
     Dates: start: 20241223, end: 20241223
  21. LORAZEPAM [Suspect]
     Active Substance: LORAZEPAM
     Indication: Product used for unknown indication
     Dates: start: 20241223, end: 20241223
  22. LORAZEPAM [Suspect]
     Active Substance: LORAZEPAM
     Route: 048
     Dates: start: 20241223, end: 20241223
  23. LORAZEPAM [Suspect]
     Active Substance: LORAZEPAM
     Route: 048
     Dates: start: 20241223, end: 20241223
  24. LORAZEPAM [Suspect]
     Active Substance: LORAZEPAM
     Dates: start: 20241223, end: 20241223
  25. OXAZEPAM [Interacting]
     Active Substance: OXAZEPAM
     Indication: Anxiety
     Dosage: 20 MILLIGRAM, QD (1 TAB OF 10 MG IN THE MORNING + 1 TAB AT MIDDAY)
  26. OXAZEPAM [Interacting]
     Active Substance: OXAZEPAM
     Dosage: 20 MILLIGRAM, QD (1 TAB OF 10 MG IN THE MORNING + 1 TAB AT MIDDAY)
     Route: 048
  27. OXAZEPAM [Interacting]
     Active Substance: OXAZEPAM
     Dosage: 20 MILLIGRAM, QD (1 TAB OF 10 MG IN THE MORNING + 1 TAB AT MIDDAY)
     Route: 048
  28. OXAZEPAM [Interacting]
     Active Substance: OXAZEPAM
     Dosage: 20 MILLIGRAM, QD (1 TAB OF 10 MG IN THE MORNING + 1 TAB AT MIDDAY)
  29. METFORMIN [Concomitant]
     Active Substance: METFORMIN HYDROCHLORIDE
     Indication: Type 2 diabetes mellitus
     Dosage: 500 MILLIGRAM, QD
  30. METFORMIN [Concomitant]
     Active Substance: METFORMIN HYDROCHLORIDE
     Dosage: 500 MILLIGRAM, QD
     Route: 048
  31. METFORMIN [Concomitant]
     Active Substance: METFORMIN HYDROCHLORIDE
     Dosage: 500 MILLIGRAM, QD
     Route: 048
  32. METFORMIN [Concomitant]
     Active Substance: METFORMIN HYDROCHLORIDE
     Dosage: 500 MILLIGRAM, QD

REACTIONS (5)
  - Coma [Recovered/Resolved]
  - Sedation [Recovered/Resolved]
  - Hypotension [Recovered/Resolved]
  - Wrong patient [Recovered/Resolved]
  - Drug interaction [Unknown]

NARRATIVE: CASE EVENT DATE: 20241223
